FAERS Safety Report 6774296-5 (Version None)
Quarter: 2010Q2

REPORT INFORMATION
  Report Type: 
  Country: None (occurrence: None)
  Receive Date: 20100617
  Receipt Date: 20100607
  Transmission Date: 20101027
  Serious: Yes (Other)
  Sender: FDA-Public Use
  Company Number: GB-PFIZER INC-2010067293

PATIENT
  Age: 41 Year
  Sex: Female

DRUGS (1)
  1. CHAMPIX [Suspect]
     Dosage: 1 MG, 2X/DAY
     Route: 048
     Dates: start: 20100408

REACTIONS (5)
  - ABNORMAL DREAMS [None]
  - APATHY [None]
  - DEPRESSED MOOD [None]
  - INAPPROPRIATE AFFECT [None]
  - SUICIDAL IDEATION [None]
